FAERS Safety Report 20212853 (Version 2)
Quarter: 2022Q1

REPORT INFORMATION
  Report Type: Spontaneous
  Country: US (occurrence: US)
  Receive Date: 20211221
  Receipt Date: 20220114
  Transmission Date: 20220424
  Serious: No
  Sender: FDA-Public Use
  Company Number: US-BEH-2021139408

PATIENT
  Sex: Male

DRUGS (1)
  1. HIZENTRA [Suspect]
     Active Substance: HUMAN IMMUNOGLOBULIN G
     Indication: Immunodeficiency common variable
     Dosage: 10 GRAM, QW
     Route: 058
     Dates: start: 201904

REACTIONS (10)
  - Infusion site swelling [Unknown]
  - Infusion site vesicles [Recovered/Resolved]
  - Infusion site pain [Unknown]
  - Infusion site bruising [Unknown]
  - Nasopharyngitis [Unknown]
  - Chills [Unknown]
  - Dysphonia [Unknown]
  - Infusion site discharge [Unknown]
  - Infusion site vesicles [Unknown]
  - Malaise [Unknown]
